FAERS Safety Report 7074367-2 (Version None)
Quarter: 2010Q4

REPORT INFORMATION
  Report Type: 
  Country: None (occurrence: None)
  Receive Date: 20101029
  Receipt Date: 20101026
  Transmission Date: 20110411
  Serious: Yes (Life-Threatening, Hospitalization)
  Sender: FDA-Public Use
  Company Number: FR-BRISTOL-MYERS SQUIBB COMPANY-15353196

PATIENT
  Sex: Male
  Weight: 1 kg

DRUGS (2)
  1. TAXOL [Suspect]
     Indication: OVARIAN CANCER
     Dates: start: 20100722
  2. CARBOPLATIN [Suspect]
     Indication: OVARIAN CANCER
     Dosage: 10MG/ML
     Dates: start: 20100722

REACTIONS (4)
  - NEONATAL RESPIRATORY DISTRESS SYNDROME [None]
  - PREMATURE BABY [None]
  - RENAL TUBULAR DISORDER [None]
  - SMALL FOR DATES BABY [None]
